FAERS Safety Report 8760451 (Version 1)
Quarter: 2012Q4

REPORT INFORMATION
  Report Type: Spontaneous
  Country: US (occurrence: None)
  Receive Date: 20120829
  Receipt Date: 20120829
  Transmission Date: 20130627
  Serious: Yes (Hospitalization)
  Sender: FDA-Public Use
  Company Number: None

PATIENT
  Age: 72 Year
  Sex: Male
  Weight: 88.7 kg

DRUGS (11)
  1. 5-FU [Suspect]
     Indication: PANCREATIC ADENOCARCINOMA
     Dates: start: 20120813
  2. IRINOTECAN IV [Suspect]
     Dates: start: 20120813
  3. OXALIPLATIN IV [Suspect]
     Dates: start: 20120813
  4. LEUCOVORIN IV [Suspect]
     Dates: start: 20120813
  5. OMEPRAZOLE [Concomitant]
  6. PROCHLORPERAZINE MALOATE [Suspect]
  7. ZOFRAN [Suspect]
  8. ENSURE [Concomitant]
  9. MULTIVITAMIN [Concomitant]
  10. LEVOTHYROXINE [Concomitant]
  11. URODIAL [Concomitant]

REACTIONS (3)
  - Febrile neutropenia [None]
  - Excessive exercise [None]
  - Cholangitis [None]
